FAERS Safety Report 7546381-1 (Version None)
Quarter: 2011Q2

REPORT INFORMATION
  Report Type: 
  Country: None (occurrence: None)
  Receive Date: 20110614
  Receipt Date: 20110609
  Transmission Date: 20111010
  Serious: Yes (Other)
  Sender: FDA-Public Use
  Company Number: BR-PFIZER INC-2011126411

PATIENT
  Age: 26 Year
  Sex: Female
  Weight: 73 kg

DRUGS (2)
  1. ALPRAZOLAM [Suspect]
     Indication: ANXIETY
     Dosage: UNK
     Route: 048
     Dates: start: 20110604
  2. SYNTHROID [Concomitant]
     Indication: HYPOTHYROIDISM
     Dosage: UNK
     Dates: start: 20080101

REACTIONS (10)
  - GAIT DISTURBANCE [None]
  - DIZZINESS [None]
  - BRADYPHRENIA [None]
  - MENSTRUAL DISORDER [None]
  - SEDATION [None]
  - SOMNOLENCE [None]
  - CONFUSIONAL STATE [None]
  - DECREASED ACTIVITY [None]
  - SPEECH DISORDER [None]
  - MENORRHAGIA [None]
